FAERS Safety Report 23389513 (Version 5)
Quarter: 2024Q2

REPORT INFORMATION
  Report Type: Report from Study
  Country: US (occurrence: US)
  Receive Date: 20240110
  Receipt Date: 20240624
  Transmission Date: 20240716
  Serious: Yes (Other)
  Sender: FDA-Public Use
  Company Number: US-DRL-USA-CLI/USA/24/0000353

PATIENT
  Age: 27 Year
  Sex: Female

DRUGS (1)
  1. ZENATANE [Suspect]
     Active Substance: ISOTRETINOIN
     Indication: Product used for unknown indication
     Dates: start: 20231011, end: 20231215

REACTIONS (3)
  - Exposure during pregnancy [Unknown]
  - Product dose omission issue [Unknown]
  - Abortion induced [Unknown]

NARRATIVE: CASE EVENT DATE: 20231229
